FAERS Safety Report 20524540 (Version 1)
Quarter: 2022Q1

REPORT INFORMATION
  Report Type: Spontaneous
  Country: US (occurrence: US)
  Receive Date: 20220228
  Receipt Date: 20220228
  Transmission Date: 20220423
  Serious: No
  Sender: FDA-Public Use
  Company Number: US-BEH-2022142656

PATIENT
  Sex: Female

DRUGS (15)
  1. HIZENTRA [Suspect]
     Active Substance: HUMAN IMMUNOGLOBULIN G
     Indication: Transient ischaemic attack
     Dosage: 14 GRAM, QOW
     Route: 058
  2. HIZENTRA [Suspect]
     Active Substance: HUMAN IMMUNOGLOBULIN G
     Indication: Cerebral infarction
  3. OXYCODONE [Concomitant]
     Active Substance: OXYCODONE
  4. ASPIRIN [Concomitant]
     Active Substance: ASPIRIN
  5. BIOTIN [Concomitant]
     Active Substance: BIOTIN
  6. CALCIUM [Concomitant]
     Active Substance: CALCIUM
  7. CEPHALEXIN [Concomitant]
     Active Substance: CEPHALEXIN
  8. CLONAZEPAM [Concomitant]
     Active Substance: CLONAZEPAM
  9. LAMOTRIGINE [Concomitant]
     Active Substance: LAMOTRIGINE
  10. METHENAMINE [Concomitant]
     Active Substance: METHENAMINE
  11. VITAMINS [Concomitant]
     Active Substance: VITAMINS
  12. OMEPRAZOLE SODIUM [Concomitant]
     Active Substance: OMEPRAZOLE SODIUM
  13. PREDNISONE [Concomitant]
     Active Substance: PREDNISONE
  14. VITAMIN D3 [Concomitant]
     Active Substance: CHOLECALCIFEROL
  15. XANAX [Concomitant]
     Active Substance: ALPRAZOLAM

REACTIONS (4)
  - Influenza like illness [Recovered/Resolved]
  - Headache [Recovered/Resolved]
  - No adverse event [Unknown]
  - Off label use [Unknown]
